FAERS Safety Report 7565293-0 (Version None)
Quarter: 2011Q2

REPORT INFORMATION
  Report Type: 
  Country: None (occurrence: None)
  Receive Date: 20110623
  Receipt Date: 20110616
  Transmission Date: 20111010
  Serious: Yes (Life-Threatening)
  Sender: FDA-Public Use
  Company Number: FR-BRISTOL-MYERS SQUIBB COMPANY-15849524

PATIENT
  Age: 65 Year
  Sex: Female

DRUGS (1)
  1. ERBITUX [Suspect]
     Indication: ORAL CAVITY CANCER METASTATIC
     Dosage: 400MG/M2 THEN 250MG/M2 09FEB09-02MAR09
     Route: 042
     Dates: start: 20100203, end: 20101115

REACTIONS (1)
  - MYOCARDIAL INFARCTION [None]
